FAERS Safety Report 21129275 (Version 1)
Quarter: 2022Q3

REPORT INFORMATION
  Report Type: Spontaneous
  Country: US (occurrence: US)
  Receive Date: 20220725
  Receipt Date: 20220725
  Transmission Date: 20221026
  Serious: Yes (Other)
  Sender: FDA-Public Use
  Company Number: US-CELLTRION INC.-2022US011748

PATIENT

DRUGS (1)
  1. TRUXIMA [Suspect]
     Active Substance: RITUXIMAB-ABBS
     Indication: Multiple sclerosis
     Dosage: 10 MILLIGRAM PER MILLILITRE

REACTIONS (2)
  - Multiple sclerosis [Unknown]
  - Off label use [Unknown]
